FAERS Safety Report 12537763 (Version 1)
Quarter: 2016Q3

REPORT INFORMATION
  Report Type: Spontaneous
  Country: GB (occurrence: GB)
  Receive Date: 20160707
  Receipt Date: 20160707
  Transmission Date: 20161109
  Serious: Yes (Other)
  Sender: FDA-Public Use
  Company Number: GB-ELI_LILLY_AND_COMPANY-GB201607000567

PATIENT
  Age: 59 Year
  Sex: Female
  Weight: 82 kg

DRUGS (12)
  1. INVITA D3 [Concomitant]
     Dosage: 2 DF, WEEKLY (1/W)
     Dates: start: 20160610
  2. RAMIPRIL. [Concomitant]
     Active Substance: RAMIPRIL
     Dosage: 1 DF, QD
     Dates: start: 20160318
  3. ATORVASTATIN [Concomitant]
     Active Substance: ATORVASTATIN
     Dosage: 1 DF, QD
     Dates: start: 20160318
  4. METOPROLOL TARTRATE. [Concomitant]
     Active Substance: METOPROLOL TARTRATE
     Dosage: 1 DF, BID
     Dates: start: 20160318
  5. AMOROLFINE [Concomitant]
     Active Substance: AMOROLFINE
     Dosage: 1 DF, WEEKLY (1/W)
     Route: 061
     Dates: start: 20160610
  6. ASPIRIN                            /00002701/ [Concomitant]
     Active Substance: ASPIRIN
     Dosage: 1 DF, QD
     Dates: start: 20160318
  7. GLICLAZIDE [Concomitant]
     Active Substance: GLICLAZIDE
     Dosage: 1 DF, QD
     Dates: start: 20160420
  8. LERCANIDIPINE HYDROCHLORIDE [Concomitant]
     Active Substance: LERCANIDIPINE HYDROCHLORIDE
     Dosage: 1 DF, QD
     Dates: start: 20160318
  9. HUMULIN R [Suspect]
     Active Substance: INSULIN HUMAN
     Indication: PRODUCT USED FOR UNKNOWN INDICATION
     Dosage: UNK UNK, UNKNOWN
     Route: 065
     Dates: start: 20160622
  10. METFORMIN [Concomitant]
     Active Substance: METFORMIN HYDROCHLORIDE
     Dosage: 1 DF, BID
     Dates: start: 20160318
  11. DAPAGLIFLOZIN [Concomitant]
     Active Substance: DAPAGLIFLOZIN
     Dosage: 1 DF, QD
     Dates: start: 20160429
  12. COCODAMOL [Concomitant]
     Active Substance: ACETAMINOPHEN\CODEINE PHOSPHATE
     Dosage: 1 OR 2 4 TIMES A DAY
     Dates: start: 20160610

REACTIONS (2)
  - Swelling face [Recovered/Resolved]
  - Peripheral swelling [Recovered/Resolved]

NARRATIVE: CASE EVENT DATE: 20160622
